FAERS Safety Report 19580704 (Version 1)
Quarter: 2021Q3

REPORT INFORMATION
  Report Type: Spontaneous
  Country: US (occurrence: US)
  Receive Date: 20210720
  Receipt Date: 20210720
  Transmission Date: 20211014
  Serious: Yes (Hospitalization, Other)
  Sender: FDA-Public Use
  Company Number: US-SA-2021SA236299

PATIENT
  Age: 34 Year
  Sex: Male

DRUGS (1)
  1. CABLIVI [Suspect]
     Active Substance: CAPLACIZUMAB-YHDP
     Indication: THROMBOTIC MICROANGIOPATHY
     Dosage: 11 MG, QD
     Route: 065
     Dates: start: 20191224

REACTIONS (4)
  - Platelet count decreased [Recovered/Resolved]
  - Anger [Unknown]
  - Cerebrovascular accident [Unknown]
  - ADAMTS13 activity decreased [Not Recovered/Not Resolved]
